FAERS Safety Report 22022622 (Version 1)
Quarter: 2023Q1

REPORT INFORMATION
  Report Type: Spontaneous
  Country: US (occurrence: None)
  Receive Date: 20230220
  Receipt Date: 20230220
  Transmission Date: 20230418
  Serious: No
  Sender: FDA-Public Use
  Company Number: None

PATIENT
  Sex: Male

DRUGS (1)
  1. HUMIRA [Suspect]
     Active Substance: ADALIMUMAB
     Indication: Rheumatoid arthritis
     Dosage: 0MG/0.4ML  EVERY OTHER WEEK SUBCUTANEOUSLY? ?
     Route: 058
     Dates: start: 202210

REACTIONS (1)
  - Drug ineffective [None]
